FAERS Safety Report 16476465 (Version 5)
Quarter: 2019Q4

REPORT INFORMATION
  Report Type: Report from Study
  Country: US (occurrence: US)
  Receive Date: 20190626
  Receipt Date: 20191016
  Transmission Date: 20200122
  Serious: Yes (Hospitalization, Other)
  Sender: FDA-Public Use
  Company Number: PHEH2019US026276

PATIENT
  Sex: Female

DRUGS (1)
  1. KISQALI [Suspect]
     Active Substance: RIBOCICLIB
     Indication: PRODUCT USED FOR UNKNOWN INDICATION
     Dosage: 600 MG, UNK
     Route: 048
     Dates: start: 20190606

REACTIONS (9)
  - Gastric cancer [Unknown]
  - Abdominal pain [Unknown]
  - Protein total decreased [Unknown]
  - Ascites [Unknown]
  - Oedema peripheral [Unknown]
  - Platelet count decreased [Unknown]
  - Swelling [Unknown]
  - Abdominal distension [Not Recovered/Not Resolved]
  - White blood cell count decreased [Unknown]
